FAERS Safety Report 8773335 (Version 1)
Quarter: 2012Q4

REPORT INFORMATION
  Report Type: 
  Country: IE (occurrence: IE)
  Receive Date: 20120907
  Receipt Date: 20120907
  Transmission Date: 20130627
  Serious: Yes (Other)
  Sender: FDA-Public Use
  Company Number: IE-ROCHE-1109628

PATIENT
  Age: 51 Year
  Sex: Male

DRUGS (6)
  1. MABTHERA [Suspect]
     Indication: B-CELL LYMPHOMA
     Route: 042
     Dates: start: 20120731, end: 20120731
  2. HYDROCORTISONE [Concomitant]
  3. PARACETAMOL [Concomitant]
  4. PIRITON [Concomitant]
  5. DEXAMETHASONE [Concomitant]
  6. KYTRIL [Concomitant]

REACTIONS (5)
  - Musculoskeletal pain [Recovered/Resolved]
  - Dyspepsia [Recovered/Resolved]
  - Muscle spasms [Recovered/Resolved]
  - Dry throat [Recovered/Resolved]
  - Dry mouth [Recovered/Resolved]
